FAERS Safety Report 17325162 (Version 1)
Quarter: 2020Q1

REPORT INFORMATION
  Report Type: Spontaneous
  Country: US (occurrence: US)
  Receive Date: 20200126
  Receipt Date: 20200126
  Transmission Date: 20200409
  Serious: Yes (Other)
  Sender: FDA-Public Use
  Company Number: None

PATIENT
  Age: 72 Year
  Sex: Female
  Weight: 67.5 kg

DRUGS (8)
  1. MULTI VITAMINS [Concomitant]
     Active Substance: VITAMINS
  2. MAGNESIUM [Concomitant]
     Active Substance: MAGNESIUM
  3. EYLEA [Suspect]
     Active Substance: AFLIBERCEPT
     Indication: NEOVASCULAR AGE-RELATED MACULAR DEGENERATION
     Dosage: ?          OTHER FREQUENCY:MONTHLY;?
     Route: 047
     Dates: start: 20180302
  4. CALCIUM [Concomitant]
     Active Substance: CALCIUM
  5. POTASSIUM [Concomitant]
     Active Substance: POTASSIUM
  6. SYNTHROID 0.1MG [Concomitant]
  7. SOLIFENACIN SUCCINATE AND DORZOLAMID-E-TIMOLOL [Concomitant]
  8. PRESERVISION AREDS [Concomitant]
     Active Substance: MINERALS\VITAMINS

REACTIONS (4)
  - Photosensitivity reaction [None]
  - Eye pain [None]
  - Vision blurred [None]
  - Vitreous floaters [None]

NARRATIVE: CASE EVENT DATE: 20200124
